FAERS Safety Report 13070606 (Version 1)
Quarter: 2016Q4

REPORT INFORMATION
  Report Type: Spontaneous
  Country: FR (occurrence: FR)
  Receive Date: 20161229
  Receipt Date: 20161229
  Transmission Date: 20170207
  Serious: Yes (Hospitalization)
  Sender: FDA-Public Use
  Company Number: FR-ROCHE-1871983

PATIENT
  Age: 79 Year
  Sex: Male

DRUGS (12)
  1. PREVISCAN (FRANCE) [Concomitant]
     Active Substance: FLUINDIONE
     Indication: THROMBOSIS PROPHYLAXIS
     Route: 048
     Dates: start: 1997
  2. ESBRIET [Suspect]
     Active Substance: PIRFENIDONE
     Indication: IDIOPATHIC PULMONARY FIBROSIS
     Route: 048
     Dates: start: 20161013, end: 20161122
  3. FORTZAAR [Concomitant]
     Active Substance: HYDROCHLOROTHIAZIDE\LOSARTAN POTASSIUM
     Indication: HYPERTENSION
     Route: 048
     Dates: end: 20161122
  4. CETIRIZINE [Concomitant]
     Active Substance: CETIRIZINE HYDROCHLORIDE
  5. KAYEXALATE [Concomitant]
     Active Substance: SODIUM POLYSTYRENE SULFONATE
  6. EZETIMIBE. [Concomitant]
     Active Substance: EZETIMIBE
     Indication: DYSLIPIDAEMIA
     Route: 048
  7. LASILIX [Concomitant]
     Active Substance: FUROSEMIDE
     Indication: HYPERTENSION
     Route: 048
     Dates: start: 201608, end: 20161122
  8. NOVORAPID [Concomitant]
     Active Substance: INSULIN ASPART
  9. METFORMIN [Concomitant]
     Active Substance: METFORMIN HYDROCHLORIDE
     Indication: TYPE 2 DIABETES MELLITUS
     Route: 048
     Dates: end: 20161122
  10. AMLODIPINE [Concomitant]
     Active Substance: AMLODIPINE BESYLATE
     Indication: HYPERTENSION
     Route: 048
     Dates: end: 20161129
  11. LATANOPROST. [Concomitant]
     Active Substance: LATANOPROST
  12. ATARAX [Concomitant]
     Active Substance: HYDROXYZINE\HYDROXYZINE HYDROCHLORIDE

REACTIONS (2)
  - Purpura [Unknown]
  - Coronary artery stenosis [Recovered/Resolved with Sequelae]

NARRATIVE: CASE EVENT DATE: 201611
